FAERS Safety Report 9992338 (Version 1)
Quarter: 2014Q1

REPORT INFORMATION
  Report Type: Spontaneous
  Country: US (occurrence: US)
  Receive Date: 20140310
  Receipt Date: 20140310
  Transmission Date: 20141002
  Serious: No
  Sender: FDA-Public Use
  Company Number: US-ASTELLAS-2013US013486

PATIENT
  Sex: Male

DRUGS (3)
  1. XTANDI [Suspect]
     Indication: PROSTATE CANCER
     Dosage: 160 MG, UID/QD
     Route: 048
     Dates: start: 201309
  2. XTANDI [Suspect]
     Dosage: 80 MG, UID/QD
     Route: 048
  3. XTANDI [Suspect]
     Dosage: 40 MG, UID/QD
     Route: 048

REACTIONS (1)
  - Fatigue [Unknown]
